FAERS Safety Report 6616416-9 (Version None)
Quarter: 2010Q1

REPORT INFORMATION
  Report Type: 
  Country: None (occurrence: None)
  Receive Date: 20100305
  Receipt Date: 20100222
  Transmission Date: 20100710
  Serious: Yes (Hospitalization, Other)
  Sender: FDA-Public Use
  Company Number: PHEH2008US11470

PATIENT
  Sex: Male

DRUGS (20)
  1. AREDIA [Suspect]
     Dosage: UNK / MONTHLY
     Dates: start: 19970101, end: 20030101
  2. AREDIA [Suspect]
     Dosage: UNK / EVERY 3 MONTHS
     Dates: start: 20050101, end: 20060501
  3. ZOMETA [Suspect]
     Dosage: UNK
     Dates: start: 20030101, end: 20050101
  4. REVLIMID [Concomitant]
     Dosage: 25 MG / DAILY
  5. DECADRON [Concomitant]
     Dosage: 40 MG / WEEKLY
     Route: 048
  6. PERIOSTAT [Concomitant]
     Dosage: UNK
  7. KEFLEX [Concomitant]
     Dosage: 500 MG
  8. VICODIN [Concomitant]
     Dosage: UNK
  9. DOXYCYCLINE [Concomitant]
     Dosage: UNK
  10. CORTICOSTEROID NOS [Concomitant]
     Dosage: UNK
  11. AUGMENTIN                               /SCH/ [Concomitant]
     Dosage: UNK / 2 X DAILY
  12. CEFTIN [Concomitant]
     Dosage: UNK
  13. PEN-VEE K [Concomitant]
     Dosage: 500 MG
     Route: 048
  14. FLAGYL [Concomitant]
     Dosage: 500 MG/ QID
     Route: 048
  15. FLOMAX [Concomitant]
     Dosage: UNK
  16. AVODART [Concomitant]
     Dosage: UNK
  17. PENICILLIN ^GRUNENTHAL^ [Concomitant]
     Dosage: UNK
  18. CIPRO [Concomitant]
     Dosage: UNK
  19. BACID [Concomitant]
     Dosage: UNK
  20. MACRODANTIN [Concomitant]
     Dosage: UNK

REACTIONS (50)
  - ABSCESS [None]
  - ABSCESS DRAINAGE [None]
  - ABSCESS MANAGEMENT [None]
  - ANXIETY [None]
  - ATELECTASIS [None]
  - BLADDER CATHETERISATION [None]
  - BODY DYSMORPHIC DISORDER [None]
  - BONE DENSITY DECREASED [None]
  - BONE DISORDER [None]
  - BONE OPERATION [None]
  - DEBRIDEMENT [None]
  - DENTURE WEARER [None]
  - DIARRHOEA [None]
  - DIVERTICULUM [None]
  - EAR IRRIGATION [None]
  - EAR PAIN [None]
  - EMOTIONAL DISTRESS [None]
  - GALLBLADDER DISORDER [None]
  - GINGIVAL BLEEDING [None]
  - GINGIVAL ERYTHEMA [None]
  - GINGIVAL RECESSION [None]
  - GINGIVAL SWELLING [None]
  - GINGIVAL ULCERATION [None]
  - HAEMORRHOIDS [None]
  - INFECTION [None]
  - INGUINAL HERNIA [None]
  - INJURY [None]
  - ORAL CAVITY FISTULA [None]
  - ORAL DISORDER [None]
  - OSTEONECROSIS [None]
  - PAIN [None]
  - PERIODONTITIS [None]
  - PHYSICAL DISABILITY [None]
  - PLEURAL EFFUSION [None]
  - PNEUMONIA [None]
  - POLYP [None]
  - POLYPECTOMY [None]
  - POST PROCEDURAL INFECTION [None]
  - PROSTATECTOMY [None]
  - PROSTATOMEGALY [None]
  - PURULENT DISCHARGE [None]
  - RESIDUAL URINE [None]
  - TOOTH ABSCESS [None]
  - TOOTH DEPOSIT [None]
  - TOOTH EXTRACTION [None]
  - TOOTH LOSS [None]
  - TOOTHACHE [None]
  - URETHRAL STENOSIS [None]
  - URINARY RETENTION [None]
  - UROSEPSIS [None]
